FAERS Safety Report 5597781-0 (Version None)
Quarter: 2007Q4

REPORT INFORMATION
  Report Type: 
  Country: None (occurrence: None)
  Receive Date: 20071221
  Receipt Date: 20071022
  Transmission Date: 20080405
  Serious: No
  Sender: FDA-Public Use
  Company Number: SPV1-2007-04661

PATIENT
  Age: 8 Year
  Sex: Male
  Weight: 25.9 kg

DRUGS (2)
  1. VYVANSE [Suspect]
     Indication: ATTENTION DEFICIT/HYPERACTIVITY DISORDER
     Dosage: 50 MG, 1X/DAY:QD, ORAL
     Route: 048
     Dates: start: 20070901
  2. CLONIDINE [Concomitant]

REACTIONS (4)
  - ABDOMINAL PAIN UPPER [None]
  - ANGER [None]
  - FATIGUE [None]
  - MALAISE [None]
